FAERS Safety Report 8432920 (Version 7)
Quarter: 2013Q3

REPORT INFORMATION
  Report Type: Report from Study
  Country: US (occurrence: US)
  Receive Date: 20120229
  Receipt Date: 20130829
  Transmission Date: 20140515
  Serious: Yes (Hospitalization, Other)
  Sender: FDA-Public Use
  Company Number: US-ELI_LILLY_AND_COMPANY-US201111009041

PATIENT
  Age: 72 Year
  Sex: Female
  Weight: 78.91 kg

DRUGS (24)
  1. TERIPARATIDE [Suspect]
     Indication: OSTEOPOROSIS
     Dosage: 20 UG, QD
     Route: 065
     Dates: start: 20111107
  2. TERIPARATIDE [Suspect]
     Dosage: 20 UG, QD
     Route: 065
  3. TERIPARATIDE [Suspect]
     Dosage: 20 UG, QD
     Route: 065
  4. TERIPARATIDE [Suspect]
     Dosage: 20 UG, QD
     Route: 065
  5. TERIPARATIDE [Suspect]
     Dosage: 20 UG, QD
     Route: 065
  6. TERIPARATIDE [Suspect]
     Dosage: 20 UG, QD
  7. TERIPARATIDE [Suspect]
     Dosage: 20 UG, QD
  8. TERIPARATIDE [Suspect]
     Dosage: 20 UG, QD
  9. TERIPARATIDE [Suspect]
     Dosage: 20 UG, QD
  10. TERIPARATIDE [Suspect]
     Dosage: 20 UG, QD
  11. TERIPARATIDE [Suspect]
     Dosage: 20 UG, QD
  12. TERIPARATIDE [Suspect]
     Dosage: 20 UG, QD
  13. EVISTA [Suspect]
     Dosage: 60 MG, QD
     Route: 065
     Dates: start: 20110818, end: 20111101
  14. REQUIP [Concomitant]
     Dosage: UNK, UNKNOWN
     Route: 065
  15. OMEPRAZOLE [Concomitant]
     Dosage: UNK, UNKNOWN
     Route: 065
  16. LOSARTAN [Concomitant]
     Dosage: UNK, UNKNOWN
     Route: 065
  17. LEVOXYL [Concomitant]
     Dosage: UNK, UNKNOWN
     Route: 065
  18. CETRIZINE [Concomitant]
     Dosage: UNK, UNKNOWN
     Route: 065
  19. HYDROCHLOROTH [Concomitant]
     Dosage: UNK, UNKNOWN
     Route: 065
  20. SIMVASTATIN [Concomitant]
     Dosage: UNK, UNKNOWN
     Route: 065
  21. BABY ASPIRIN [Concomitant]
     Dosage: UNK, UNKNOWN
     Route: 065
  22. VITAMIN D NOS [Concomitant]
     Indication: VITAMIN D DECREASED
     Dosage: UNK, UNKNOWN
     Route: 065
  23. PREDNISONE [Concomitant]
     Dosage: UNK, QID
  24. CELEBREX [Concomitant]
     Dosage: UNK, PRN

REACTIONS (30)
  - Blood magnesium decreased [Unknown]
  - Atrial fibrillation [Unknown]
  - Myocardial infarction [Unknown]
  - Lens disorder [Recovered/Resolved]
  - Visual acuity reduced [Recovered/Resolved]
  - Carpal tunnel syndrome [Recovering/Resolving]
  - Muscular weakness [Unknown]
  - Somnolence [Unknown]
  - Fatigue [Unknown]
  - Post procedural complication [Unknown]
  - Post procedural infection [Recovering/Resolving]
  - Musculoskeletal discomfort [Recovered/Resolved]
  - Dyslexia [Unknown]
  - Anxiety [Not Recovered/Not Resolved]
  - Chest discomfort [Recovered/Resolved]
  - Anxiety [Recovered/Resolved]
  - Muscular weakness [Unknown]
  - Muscular weakness [Unknown]
  - Musculoskeletal discomfort [Recovered/Resolved]
  - Joint stiffness [Unknown]
  - Dizziness [Unknown]
  - Pain [Recovered/Resolved]
  - Hyperhidrosis [Recovered/Resolved]
  - Nausea [Unknown]
  - Cardiac disorder [Unknown]
  - Incorrect dose administered [Unknown]
  - Scar [Unknown]
  - Scar [Unknown]
  - Drug dose omission [Unknown]
  - Blood potassium decreased [Recovered/Resolved]
